FAERS Safety Report 5152575-5 (Version None)
Quarter: 2006Q4

REPORT INFORMATION
  Report Type: 
  Country: None (occurrence: None)
  Receive Date: 20061109
  Receipt Date: 20061023
  Transmission Date: 20070319
  Serious: Yes (Other)
  Sender: FDA-Public Use
  Company Number: 2006106659

PATIENT
  Age: 68 Year
  Sex: Female

DRUGS (4)
  1. LIPITOR [Suspect]
     Indication: BLOOD CHOLESTEROL INCREASED
     Dosage: 5 MG (1 D), ORAL
     Route: 048
  2. LIPITOR [Suspect]
     Indication: LOW DENSITY LIPOPROTEIN INCREASED
     Dosage: 5 MG (1 D), ORAL
     Route: 048
  3. AMLODIPINE BESILATE (AMLODIPINE) [Concomitant]
  4. ANGIOTENSIN II ANTAGONISTS (ANGIOTENSIN II ANTAGONISTS) [Concomitant]

REACTIONS (3)
  - BLOOD CREATINE INCREASED [None]
  - HIGH DENSITY LIPOPROTEIN INCREASED [None]
  - PROTEIN URINE PRESENT [None]
